FAERS Safety Report 21593089 (Version 1)
Quarter: 2022Q4

REPORT INFORMATION
  Report Type: Spontaneous
  Country: US (occurrence: None)
  Receive Date: 20221111
  Receipt Date: 20221111
  Transmission Date: 20230113
  Serious: Yes (Death)
  Sender: FDA-Public Use
  Company Number: None

PATIENT
  Age: 70 Year
  Sex: Male
  Weight: 94.35 kg

DRUGS (16)
  1. KEYTRUDA [Suspect]
     Active Substance: PEMBROLIZUMAB
     Indication: Lung neoplasm malignant
     Dosage: FREQUENCY : AS DIRECTED;?OTHER ROUTE : IV EVERY 21 DAYS;?
     Route: 050
  2. ONDANSETRON [Suspect]
     Active Substance: ONDANSETRON
     Indication: Lung neoplasm malignant
     Dosage: FREQUENCY : ONCE;?OTHER ROUTE : IV EVERY 21 DAYS;?
     Route: 050
  3. ACAMPROSATE [Concomitant]
     Active Substance: ACAMPROSATE
  4. Benadryl  Allergy [Concomitant]
  5. DEXAMETHASONE [Concomitant]
     Active Substance: DEXAMETHASONE
  6. DOXYCYCLINE [Concomitant]
     Active Substance: DOXYCYCLINE
  7. FOLIC ACID [Concomitant]
     Active Substance: FOLIC ACID
  8. KEPPRA [Concomitant]
     Active Substance: LEVETIRACETAM
  9. LORAZEPAM [Concomitant]
     Active Substance: LORAZEPAM
  10. MEMANTINE [Concomitant]
     Active Substance: MEMANTINE
  11. PEMETREXED [Concomitant]
     Active Substance: PEMETREXED
  12. PANTOPRAZOLE [Concomitant]
     Active Substance: PANTOPRAZOLE
  13. ROSUVASTATIN [Concomitant]
     Active Substance: ROSUVASTATIN
  14. TRAZODONE [Concomitant]
     Active Substance: TRAZODONE HYDROCHLORIDE
  15. TYLENOL [Concomitant]
     Active Substance: ACETAMINOPHEN
  16. VENTOLIN HFA [Concomitant]
     Active Substance: ALBUTEROL SULFATE

REACTIONS (1)
  - Death [None]

NARRATIVE: CASE EVENT DATE: 20221111
